FAERS Safety Report 10220399 (Version 1)
Quarter: 2014Q2

REPORT INFORMATION
  Report Type: Spontaneous
  Country: US (occurrence: US)
  Receive Date: 20140606
  Receipt Date: 20140606
  Transmission Date: 20141212
  Serious: No
  Sender: FDA-Public Use
  Company Number: US-BIOGENIDEC-2014BI053612

PATIENT
  Sex: Female

DRUGS (7)
  1. TYSABRI [Suspect]
     Indication: PRODUCT USED FOR UNKNOWN INDICATION
     Route: 042
     Dates: start: 20120320, end: 20131105
  2. AVONEX [Concomitant]
     Route: 030
     Dates: start: 20051008
  3. TECFIDERA [Concomitant]
     Indication: PRODUCT USED FOR UNKNOWN INDICATION
     Route: 048
     Dates: start: 20131218
  4. AMPYRA [Concomitant]
     Indication: ASTHENIA
  5. GABAPENTIN [Concomitant]
  6. NUVIGIL [Concomitant]
  7. VENLAFAXINE [Concomitant]

REACTIONS (1)
  - Flushing [Unknown]
